FAERS Safety Report 24575055 (Version 1)
Quarter: 2024Q4

REPORT INFORMATION
  Report Type: Spontaneous
  Country: NL (occurrence: NL)
  Receive Date: 20241104
  Receipt Date: 20241104
  Transmission Date: 20250115
  Serious: Yes (Other)
  Sender: AUROBINDO
  Company Number: NL-LRB-01009938

PATIENT
  Age: 35 Year
  Sex: Female
  Weight: 66 kg

DRUGS (1)
  1. PREDNISOLONE [Suspect]
     Active Substance: PREDNISOLONE
     Indication: Asthma
     Dosage: 40 MILLIGRAM, ONCE A DAY
     Route: 065
     Dates: start: 20241009

REACTIONS (4)
  - Glaucoma [Recovering/Resolving]
  - Vision blurred [Recovered/Resolved]
  - Mood swings [Recovered/Resolved]
  - Increased appetite [Recovered/Resolved]
